FAERS Safety Report 7208411-6 (Version None)
Quarter: 2011Q1

REPORT INFORMATION
  Report Type: 
  Country: None (occurrence: None)
  Receive Date: 20110104
  Receipt Date: 20101222
  Transmission Date: 20110831
  Serious: Yes (Other)
  Sender: FDA-Public Use
  Company Number: US-ELI_LILLY_AND_COMPANY-US201010000229

PATIENT
  Sex: Male

DRUGS (8)
  1. CELEBREX [Concomitant]
  2. LEVOTHROID [Concomitant]
  3. LISINOPRIL [Concomitant]
  4. CYMBALTA [Suspect]
     Dosage: 60 MG, EACH EVENING
     Dates: start: 20100801
  5. HYDROCHLOROTHIAZIDE [Concomitant]
  6. CYMBALTA [Suspect]
     Indication: DEPRESSION
     Dosage: 30 MG, EACH EVENING
     Dates: start: 20100701, end: 20100801
  7. LOVASTATIN [Concomitant]
  8. MIRALAX [Concomitant]

REACTIONS (7)
  - SNORING [None]
  - SLEEP TALKING [None]
  - DYSKINESIA [None]
  - ABNORMAL DREAMS [None]
  - BASAL CELL CARCINOMA [None]
  - ENURESIS [None]
  - PAIN [None]
